FAERS Safety Report 6318707-8 (Version None)
Quarter: 2009Q3

REPORT INFORMATION
  Report Type: 
  Country: None (occurrence: None)
  Receive Date: 20090819
  Receipt Date: 20090810
  Transmission Date: 20100115
  Serious: Yes (Hospitalization)
  Sender: FDA-Public Use
  Company Number: 2009AL005277

PATIENT
  Age: 55 Year
  Sex: Male

DRUGS (9)
  1. RANITIDINE [Suspect]
     Indication: GASTROOESOPHAGEAL REFLUX DISEASE
     Dosage: 300 MG; BID; PO
     Route: 048
     Dates: start: 20090716, end: 20090722
  2. FRAGMIN [Concomitant]
  3. LOPERAMIDE [Concomitant]
  4. SIMVASTATIN [Concomitant]
  5. ZOPICLONE [Concomitant]
  6. BISOPROLOL [Concomitant]
  7. NICORANDIL [Concomitant]
  8. CLOPIDOGREL [Concomitant]
  9. QUININE [Concomitant]

REACTIONS (1)
  - RENAL FAILURE ACUTE [None]
